FAERS Safety Report 10788739 (Version 1)
Quarter: 2015Q1

REPORT INFORMATION
  Report Type: Spontaneous
  Country: NL (occurrence: None)
  Receive Date: 20150210
  Receipt Date: 20150210
  Transmission Date: 20150721
  Serious: Yes (Life-Threatening, Hospitalization)
  Sender: FDA-Public Use
  Company Number: OTH-SPN-2003017

PATIENT
  Age: 7 Month
  Sex: Female

DRUGS (3)
  1. SODIUM BENZOATE [Concomitant]
     Active Substance: SODIUM BENZOATE
  2. CARNITINE [Concomitant]
     Active Substance: CARNITINE
  3. CARBAGLU [Suspect]
     Active Substance: CARGLUMIC ACID
     Indication: HYPERAMMONAEMIA
     Route: 048
     Dates: start: 20030329, end: 20030401

REACTIONS (6)
  - Blood magnesium decreased [None]
  - Blood glucose increased [None]
  - Hyperammonaemia [None]
  - Seizure [None]
  - Adverse event [None]
  - Vomiting [None]

NARRATIVE: CASE EVENT DATE: 20030330
